FAERS Safety Report 7130634 (Version 4)
Quarter: 2017Q2

REPORT INFORMATION
  Report Type: Report from Study
  Country: PT (occurrence: PT)
  Receive Date: 20090925
  Receipt Date: 20170512
  Transmission Date: 20170830
  Serious: Yes (Life-Threatening, Other)
  Sender: FDA-Public Use
  Company Number: PT-PFIZER INC-2009270596

PATIENT
  Age: 45 Year
  Sex: Female

DRUGS (16)
  1. OMEPRAZOL [Concomitant]
     Active Substance: OMEPRAZOLE
     Dosage: 20 MG, UNK
  2. RANITIDINE. [Concomitant]
     Active Substance: RANITIDINE
     Dosage: 50 MG, UNK
     Dates: start: 20090729
  3. TAXOTERE [Suspect]
     Active Substance: DOCETAXEL
     Indication: BREAST CANCER
     Dosage: 75 MG/M2, CYCLIC (EVERY 3 WEEKS FOR 4 CYCLES)
     Route: 042
     Dates: start: 20090708, end: 20090708
  4. LOPERAMIDE [Concomitant]
     Active Substance: LOPERAMIDE
     Dosage: 2 MG, UNK
  5. HYDROCORTISONE. [Concomitant]
     Active Substance: HYDROCORTISONE
     Dosage: 200 MG, UNK
     Dates: start: 20090729
  6. SUNITINIB MALATE. [Suspect]
     Active Substance: SUNITINIB MALATE
     Dosage: 37.5 MG, CYCLIC (14 DAYS ON, 7 DAYS OFF) (4 CYCLES OF COMBINATION THERAPY WITH DOCETAXEL)
     Route: 048
     Dates: start: 20090709, end: 20090722
  7. SUNITINIB MALATE. [Suspect]
     Active Substance: SUNITINIB MALATE
     Indication: BREAST CANCER
     Dosage: 50 MG/D, FOR FOLLOWED BY 7 DAYS OFF (UPFRONT WINDOW)
     Route: 048
     Dates: start: 20090618, end: 20090701
  8. DEXAMETASONE [Concomitant]
     Active Substance: DEXAMETHASONE
     Indication: PREMEDICATION
     Dosage: 20 MG, UNK
     Route: 042
  9. SUNITINIB MALATE. [Suspect]
     Active Substance: SUNITINIB MALATE
     Dosage: 37.5 MG, CYCLIC (14 DAYS ON, 7 DAYS OFF) (4 CYCLES OF COMBINATION THERAPY WITH DOCETAXEL)
     Route: 048
     Dates: start: 20090730, end: 20090812
  10. TAXOTERE [Suspect]
     Active Substance: DOCETAXEL
     Dosage: 75 MG/M2, CYCLIC (EVERY 3 WEEKS FOR 4 CYCLES)
     Route: 042
     Dates: start: 20090819, end: 20090819
  11. CLEMASTINE [Concomitant]
     Active Substance: CLEMASTINE
     Dosage: 1 MG/ML, 2X/DAY
     Dates: start: 20090729
  12. METOCLOPRAMIDE. [Concomitant]
     Active Substance: METOCLOPRAMIDE
     Dosage: 10 MG, AS NEEDED
  13. PREDNISOLONE. [Concomitant]
     Active Substance: PREDNISOLONE
     Indication: PREMEDICATION
     Dosage: 50 MG, IN THE EVENING PRIOR AND IN THE MORNING OF TREATMENT
     Route: 048
  14. SUNITINIB MALATE. [Suspect]
     Active Substance: SUNITINIB MALATE
     Dosage: 37.5 MG, CYCLIC (14 DAYS ON, 7 DAYS OFF) (4 CYCLES OF COMBINATION THERAPY WITH DOCETAXEL)
     Route: 048
     Dates: start: 20090820
  15. TAXOTERE [Suspect]
     Active Substance: DOCETAXEL
     Dosage: 75 MG/M2, CYCLIC (EVERY 3 WEEKS FOR 4 CYCLES)
     Route: 042
     Dates: start: 20090729, end: 20090729
  16. METAMIZOLE MAGNESIUM [Concomitant]
     Active Substance: METAMIZOLE MAGNESIUM
     Dosage: 575 MG, AS NEEDED
     Dates: start: 20090717

REACTIONS (5)
  - Anaphylactic reaction [Recovered/Resolved]
  - Dyspnoea [Recovered/Resolved]
  - Oxygen saturation decreased [Recovered/Resolved]
  - Malaise [Recovered/Resolved]
  - Flushing [Recovered/Resolved]

NARRATIVE: CASE EVENT DATE: 20090819
